FAERS Safety Report 16903029 (Version 2)
Quarter: 2019Q4

REPORT INFORMATION
  Report Type: Report from Study
  Country: US (occurrence: US)
  Receive Date: 20191010
  Receipt Date: 20191104
  Transmission Date: 20200122
  Serious: Yes (Other)
  Sender: FDA-Public Use
  Company Number: US-JNJFOC-20190936400

PATIENT
  Sex: Female

DRUGS (4)
  1. STELARA [Suspect]
     Active Substance: USTEKINUMAB
     Indication: GUTTATE PSORIASIS
     Route: 058
     Dates: start: 2019, end: 2019
  2. TREMFYA [Suspect]
     Active Substance: GUSELKUMAB
     Indication: GUTTATE PSORIASIS
     Route: 058
     Dates: start: 2018, end: 2019
  3. CIMZIA [Concomitant]
     Active Substance: CERTOLIZUMAB PEGOL
  4. TREMFYA [Suspect]
     Active Substance: GUSELKUMAB
     Route: 058
     Dates: start: 2019

REACTIONS (11)
  - Dermatitis [Not Recovered/Not Resolved]
  - Rhinitis [Unknown]
  - Off label use [Unknown]
  - Bone disorder [Unknown]
  - Chemotherapy [Unknown]
  - Drug level increased [Unknown]
  - Guttate psoriasis [Not Recovered/Not Resolved]
  - Product use in unapproved indication [Unknown]
  - Drug ineffective [Recovered/Resolved]
  - Head injury [Unknown]
  - Overdose [Unknown]

NARRATIVE: CASE EVENT DATE: 2018
